FAERS Safety Report 8802809 (Version 2)
Quarter: 2015Q2

REPORT INFORMATION
  Report Type: Report from Study
  Country: US (occurrence: US)
  Receive Date: 20120921
  Receipt Date: 20150616
  Transmission Date: 20150821
  Serious: Yes (Death)
  Sender: FDA-Public Use
  Company Number: US-ROCHE-1094081

PATIENT
  Sex: Male

DRUGS (7)
  1. AVASTIN [Suspect]
     Active Substance: BEVACIZUMAB
     Indication: OESOPHAGEAL CARCINOMA
     Route: 042
     Dates: start: 20051229
  2. NEULASTA [Concomitant]
     Active Substance: PEGFILGRASTIM
     Route: 065
  3. AVASTIN [Suspect]
     Active Substance: BEVACIZUMAB
     Route: 042
     Dates: start: 20060120
  4. ALOXI [Concomitant]
     Active Substance: PALONOSETRON HYDROCHLORIDE
     Route: 042
  5. TAXOTERE [Concomitant]
     Active Substance: DOCETAXEL
     Route: 042
  6. BENADRYL [Concomitant]
     Active Substance: DIPHENHYDRAMINE HYDROCHLORIDE
     Route: 042
  7. DECADRON [Concomitant]
     Active Substance: DEXAMETHASONE
     Route: 042

REACTIONS (2)
  - Off label use [Unknown]
  - Death [Fatal]
